FAERS Safety Report 10846465 (Version 5)
Quarter: 2015Q4

REPORT INFORMATION
  Report Type: Report from Study
  Country: AR (occurrence: AR)
  Receive Date: 20150220
  Receipt Date: 20151124
  Transmission Date: 20160304
  Serious: Yes (Hospitalization, Other)
  Sender: FDA-Public Use
  Company Number: AR-BRISTOL-MYERS SQUIBB COMPANY-21253281

PATIENT
  Age: 66 Year
  Sex: Female

DRUGS (1)
  1. ABATACEPT [Suspect]
     Active Substance: ABATACEPT
     Indication: RHEUMATOID ARTHRITIS
     Dosage: UNK, Q4WK
     Route: 042
     Dates: start: 20120825, end: 20150601

REACTIONS (14)
  - Pain in extremity [Not Recovered/Not Resolved]
  - Infection [Recovering/Resolving]
  - Viral infection [Unknown]
  - Blood potassium decreased [Unknown]
  - Depression [Recovering/Resolving]
  - Blood sodium decreased [Unknown]
  - Blood calcium decreased [Unknown]
  - Anaemia [Recovering/Resolving]
  - Fall [Unknown]
  - Femur fracture [Not Recovered/Not Resolved]
  - Haematoma [Recovering/Resolving]
  - Surgery [Unknown]
  - Hospitalisation [Unknown]
  - Back pain [Unknown]

NARRATIVE: CASE EVENT DATE: 20140714
